FAERS Safety Report 8044014-1 (Version None)
Quarter: 2011Q4

REPORT INFORMATION
  Report Type: 
  Country: None (occurrence: None)
  Receive Date: 20111209
  Receipt Date: 20110929
  Transmission Date: 20120403
  Serious: No
  Sender: FDA-Public Use
  Company Number: 2011SP046259

PATIENT
  Age: 60 Year
  Sex: Male

DRUGS (3)
  1. RIBAVIRIN [Suspect]
     Indication: PRODUCT USED FOR UNKNOWN INDICATION
  2. VICTRELIS [Suspect]
     Indication: HEPATITIS C
     Dosage: TID, PO
     Route: 048
     Dates: start: 20110701
  3. PEGASYS [Suspect]
     Indication: PRODUCT USED FOR UNKNOWN INDICATION

REACTIONS (6)
  - RASH [None]
  - PRURITUS [None]
  - DRY SKIN [None]
  - RED BLOOD CELL COUNT DECREASED [None]
  - DYSPNOEA [None]
  - WHITE BLOOD CELL COUNT DECREASED [None]
